FAERS Safety Report 5002852-3 (Version None)
Quarter: 2006Q2

REPORT INFORMATION
  Report Type: 
  Country: None (occurrence: None)
  Receive Date: 20060512
  Receipt Date: 20060503
  Transmission Date: 20061013
  Serious: Yes (Other)
  Sender: FDA-Public Use
  Company Number: BR-2006-011143

PATIENT
  Age: 34 Year
  Sex: Female

DRUGS (1)
  1. MIRENA [Suspect]
     Indication: ENDOMETRIOSIS
     Dosage: 20 UG/DAY, CONT, INTRA-UTERINE
     Route: 015
     Dates: start: 20020101, end: 20051201

REACTIONS (10)
  - ACNE [None]
  - CYST [None]
  - DEPRESSION [None]
  - DIZZINESS [None]
  - HAEMATOMA [None]
  - HAEMORRHAGIC CYST [None]
  - HEADACHE [None]
  - SWELLING FACE [None]
  - VOMITING [None]
  - WEIGHT INCREASED [None]
